FAERS Safety Report 7562471-1 (Version None)
Quarter: 2011Q2

REPORT INFORMATION
  Report Type: 
  Country: None (occurrence: None)
  Receive Date: 20110622
  Receipt Date: 20110607
  Transmission Date: 20111010
  Serious: Yes (Disabling, Other)
  Sender: FDA-Public Use
  Company Number: GB-RANBAXY-2011R1-45228

PATIENT
  Age: 47 Year
  Sex: Female

DRUGS (5)
  1. GABAPENTIN [Suspect]
     Indication: DIABETIC NEUROPATHY
     Dosage: 600 MG, TID
     Route: 048
     Dates: start: 20040201, end: 20110401
  2. ATENOLOL [Concomitant]
     Indication: HYPERTENSION
     Dosage: 50 MG, UNK
     Route: 048
     Dates: start: 20060514
  3. ORAMORPH SR [Concomitant]
     Indication: PAIN
     Dosage: AS NECESSARY
     Route: 048
  4. MXL [Concomitant]
     Indication: PAIN
     Dosage: 60 MG, UNK
     Route: 048
     Dates: start: 20001101
  5. SIMVASTATIN [Concomitant]
     Indication: HYPERCHOLESTEROLAEMIA
     Dosage: 40 MG, UNK
     Route: 048
     Dates: start: 20060925

REACTIONS (5)
  - MALAISE [None]
  - INFECTION [None]
  - DIARRHOEA [None]
  - WEIGHT DECREASED [None]
  - HYPERHIDROSIS [None]
